FAERS Safety Report 15843601 (Version 6)
Quarter: 2019Q3

REPORT INFORMATION
  Report Type: Report from Study
  Country: CA (occurrence: CA)
  Receive Date: 20190118
  Receipt Date: 20190820
  Transmission Date: 20191004
  Serious: Yes (Other)
  Sender: FDA-Public Use
  Company Number: CA-PFIZER INC-2019019507

PATIENT
  Age: 71 Year
  Sex: Male

DRUGS (7)
  1. PANTOPRAZOLE [Suspect]
     Active Substance: PANTOPRAZOLE
     Dosage: UNK
     Route: 048
  2. RAMIPRIL. [Suspect]
     Active Substance: RAMIPRIL
     Dosage: UNK
     Route: 048
  3. TIAZAC [DILTIAZEM HYDROCHLORIDE] [Concomitant]
     Dosage: UNK
  4. SANDOSTATIN LAR DEPOT [Suspect]
     Active Substance: OCTREOTIDE ACETATE
     Dosage: 30 MG, 3/WEEK
     Route: 030
  5. APO-METOPROLOL [Concomitant]
     Active Substance: METOPROLOL
     Dosage: UNK
  6. ALLOPURINOL [ALLOPURINOL SODIUM] [Concomitant]
     Dosage: UNK
  7. SANDOSTATIN LAR DEPOT [Suspect]
     Active Substance: OCTREOTIDE ACETATE
     Indication: CARCINOID TUMOUR
     Dosage: 30 MG, 4/WEEK
     Route: 030
     Dates: start: 20170208

REACTIONS (4)
  - Abdominal discomfort [Unknown]
  - Body temperature decreased [Unknown]
  - Blood pressure systolic increased [Unknown]
  - Injection site haemorrhage [Unknown]

NARRATIVE: CASE EVENT DATE: 20190109
